FAERS Safety Report 17025107 (Version 3)
Quarter: 2020Q2

REPORT INFORMATION
  Report Type: Report from Study
  Country: BR (occurrence: BR)
  Receive Date: 20191113
  Receipt Date: 20200504
  Transmission Date: 20200713
  Serious: Yes (Other)
  Sender: FDA-Public Use
  Company Number: BR-UCBSA-2019046622

PATIENT
  Age: 37 Year
  Sex: Female
  Weight: 75 kg

DRUGS (4)
  1. MONURIL [Concomitant]
     Active Substance: FOSFOMYCIN TROMETHAMINE
     Indication: URINARY TRACT INFECTION
     Dosage: UNK
     Route: 048
     Dates: start: 20191101, end: 20191101
  2. LEVOTIROXINA [LEVOTHYROXINE] [Concomitant]
     Indication: THYROID DISORDER
     Dosage: UNK, ONCE DAILY (QD)
     Route: 048
     Dates: start: 201907
  3. CERTOLIZUMAB PEGOL RA [Suspect]
     Active Substance: CERTOLIZUMAB PEGOL
     Indication: RHEUMATOID ARTHRITIS
     Dosage: 200 MILLIGRAM, MONTHLY (QM)
     Route: 058
     Dates: start: 201810, end: 20191104
  4. CERTOLIZUMAB PEGOL RA [Suspect]
     Active Substance: CERTOLIZUMAB PEGOL
     Dosage: 200 MILLIGRAM, MONTHLY (QM)
     Route: 058
     Dates: end: 20200324

REACTIONS (4)
  - Off label use [Unknown]
  - Urinary tract infection [Recovering/Resolving]
  - Thyroid disorder [Unknown]
  - Tooth infection [Not Recovered/Not Resolved]

NARRATIVE: CASE EVENT DATE: 201810
